FAERS Safety Report 15428244 (Version 3)
Quarter: 2025Q3

REPORT INFORMATION
  Report Type: Report from Study
  Country: EU (occurrence: EU)
  Receive Date: 20180926
  Receipt Date: 20250717
  Transmission Date: 20251020
  Serious: Yes (Death, Hospitalization, Other)
  Sender: AUROBINDO
  Company Number: EU-AUROBINDO-AUR-APL-2018-046990

PATIENT
  Age: 3 Year
  Sex: Male

DRUGS (5)
  1. ACETAMINOPHEN [Suspect]
     Active Substance: ACETAMINOPHEN
     Indication: Pyrexia
     Route: 065
  2. ACETAMINOPHEN [Suspect]
     Active Substance: ACETAMINOPHEN
     Indication: Oral herpes
  3. TRAMADOL [Suspect]
     Active Substance: TRAMADOL
     Indication: Oral herpes
     Route: 065
  4. TRAMADOL [Suspect]
     Active Substance: TRAMADOL
     Indication: Pyrexia
  5. DIAZEPAM [Concomitant]
     Active Substance: DIAZEPAM
     Indication: Product used for unknown indication
     Route: 065

REACTIONS (13)
  - Cardiac arrest [Fatal]
  - Hypertonia [Fatal]
  - Dyspnoea [Fatal]
  - Tachycardia [Fatal]
  - Overdose [Fatal]
  - Hypertension [Fatal]
  - Balance disorder [Fatal]
  - Apnoea [Fatal]
  - Hypoxia [Fatal]
  - Hepatic cytolysis [Fatal]
  - Decreased eye contact [Fatal]
  - Product use issue [Fatal]
  - Toxicity to various agents [Unknown]
